FAERS Safety Report 19998124 (Version 3)
Quarter: 2021Q4

REPORT INFORMATION
  Report Type: Spontaneous
  Country: US (occurrence: US)
  Receive Date: 20211026
  Receipt Date: 20211216
  Transmission Date: 20220303
  Serious: No
  Sender: FDA-Public Use
  Company Number: US-GLENMARK PHARMACEUTICALS-2021GMK067629

PATIENT

DRUGS (2)
  1. BETAMETHASONE DIPROPIONATE [Suspect]
     Active Substance: BETAMETHASONE DIPROPIONATE
     Indication: Dermatitis contact
     Dosage: UNK
     Route: 061
     Dates: start: 202102
  2. SILVADYN [Concomitant]
     Indication: Product used for unknown indication
     Dosage: UNK
     Route: 065

REACTIONS (5)
  - Feeling hot [Unknown]
  - Burning sensation [Unknown]
  - Pruritus [Unknown]
  - Skin irritation [Unknown]
  - Drug ineffective [Unknown]
